FAERS Safety Report 5002991-7 (Version None)
Quarter: 2006Q2

REPORT INFORMATION
  Report Type: 
  Country: None (occurrence: None)
  Receive Date: 20060516
  Receipt Date: 20051005
  Transmission Date: 20061013
  Serious: Yes (Death, Hospitalization, Other)
  Sender: FDA-Public Use
  Company Number: PR-MERCK-0510USA04228

PATIENT
  Age: 82 Year
  Sex: Female
  Weight: 52 kg

DRUGS (7)
  1. VIOXX [Suspect]
     Indication: ARTHRITIS
     Route: 048
     Dates: start: 20010731, end: 20040303
  2. FOSAMAX [Concomitant]
     Route: 065
  3. LIPITOR [Concomitant]
     Route: 065
  4. AMBIEN [Concomitant]
     Route: 065
  5. PRILOSEC [Concomitant]
     Route: 065
  6. PROPAFENONE HYDROCHLORIDE [Concomitant]
     Route: 065
  7. ATENOLOL [Concomitant]
     Route: 065

REACTIONS (10)
  - ATRIAL FIBRILLATION [None]
  - CAROTID ARTERY STENOSIS [None]
  - CEREBROVASCULAR ACCIDENT [None]
  - EMBOLISM [None]
  - HYPERTENSION [None]
  - HYPERTENSIVE CRISIS [None]
  - MYOCARDIAL INFARCTION [None]
  - POLYTRAUMATISM [None]
  - SYNCOPE [None]
  - TRANSIENT ISCHAEMIC ATTACK [None]
